FAERS Safety Report 24104817 (Version 1)
Quarter: 2024Q3

REPORT INFORMATION
  Report Type: Spontaneous
  Country: CA (occurrence: CA)
  Receive Date: 20240717
  Receipt Date: 20240717
  Transmission Date: 20241016
  Serious: Yes (Other)
  Sender: CHEPLAPHARM
  Company Number: CA-UCBSA-2024011569

PATIENT
  Sex: Male
  Weight: 17 kg

DRUGS (3)
  1. CLONAZEPAM [Suspect]
     Active Substance: CLONAZEPAM
     Indication: Product used for unknown indication
  2. LAMOTRIGINE [Suspect]
     Active Substance: LAMOTRIGINE
     Indication: Product used for unknown indication
  3. LEVETIRACETAM [Suspect]
     Active Substance: LEVETIRACETAM
     Indication: Epilepsy
     Dosage: 2 EVERY 1 DAYS ?DAILY DOSE: 1000 MILLIGRAM
     Route: 048

REACTIONS (2)
  - Seizure [Unknown]
  - Therapeutic product effect incomplete [Unknown]
